FAERS Safety Report 4540348-3 (Version None)
Quarter: 2004Q4

REPORT INFORMATION
  Report Type: 
  Country: None (occurrence: None)
  Receive Date: 20041228
  Receipt Date: 20041228
  Transmission Date: 20050328
  Serious: Yes (Death)
  Sender: FDA-Public Use
  Company Number: None

PATIENT
  Age: 85 Year
  Sex: Male
  Weight: 75 kg

DRUGS (4)
  1. OXALIPLATIN 60 MG/M2 [Suspect]
     Indication: RECTAL CANCER
     Dosage: 110 MG IV WKLY
     Route: 042
     Dates: start: 20041129
  2. OXALIPLATIN 60 MG/M2 [Suspect]
     Indication: RECTAL CANCER
     Dosage: 110 MG IV WKLY
     Route: 042
     Dates: start: 20041206
  3. OXALIPLATIN 60 MG/M2 [Suspect]
     Indication: RECTAL CANCER
     Dosage: 110 MG IV WKLY
     Route: 042
     Dates: start: 20041213
  4. CAPECITABINE 1650 MG/M2/D [Suspect]
     Dosage: 3000 MG PO DAILY
     Route: 048
     Dates: start: 20041129, end: 20041214

REACTIONS (4)
  - BLOOD CREATININE INCREASED [None]
  - DEHYDRATION [None]
  - DIARRHOEA [None]
  - GENERAL PHYSICAL HEALTH DETERIORATION [None]
